FAERS Safety Report 9072558 (Version 3)
Quarter: 2013Q1

REPORT INFORMATION
  Report Type: Spontaneous
  Country: DE (occurrence: DE)
  Receive Date: 20130117
  Receipt Date: 20130117
  Transmission Date: 20140127
  Serious: Yes (Other)
  Sender: FDA-Public Use
  Company Number: DE-PFIZER INC-2013009858

PATIENT
  Age: 39 Year
  Sex: Female

DRUGS (2)
  1. SAYANA [Suspect]
     Indication: CONTRACEPTION
     Dosage: 1ST INJECTION
     Route: 058
     Dates: start: 20120713
  2. SAYANA [Suspect]
     Dosage: 2ND INJECTION
     Route: 058
     Dates: start: 20121012

REACTIONS (4)
  - Drug ineffective [Unknown]
  - Unintended pregnancy [Unknown]
  - Haemorrhage in pregnancy [Unknown]
  - Cystitis haemorrhagic [Unknown]
